FAERS Safety Report 13500326 (Version 1)
Quarter: 2017Q2

REPORT INFORMATION
  Report Type: Spontaneous
  Country: None (occurrence: EC)
  Receive Date: 20170501
  Receipt Date: 20170501
  Transmission Date: 20170830
  Serious: Yes (Other)
  Sender: FDA-Public Use
  Company Number: EC-POPULATION COUNCIL, INC.-2020052

PATIENT
  Age: 36 Year
  Sex: Female

DRUGS (1)
  1. JADELLE [Suspect]
     Active Substance: LEVONORGESTREL
     Indication: CONTRACEPTION
     Route: 059
     Dates: start: 20170418

REACTIONS (1)
  - Implant site haematoma [Recovering/Resolving]

NARRATIVE: CASE EVENT DATE: 20170418
